FAERS Safety Report 4291219-1 (Version None)
Quarter: 2004Q1

REPORT INFORMATION
  Report Type: 
  Country: None (occurrence: None)
  Receive Date: 20040211
  Receipt Date: 20031111
  Transmission Date: 20041129
  Serious: No
  Sender: FDA-Public Use
  Company Number: US-GLAXOSMITHKLINE-A0439881A

PATIENT
  Age: 24 Year
  Sex: Female

DRUGS (6)
  1. PAXIL [Suspect]
     Indication: DEPRESSION
     Dosage: 20MG PER DAY
     Route: 048
     Dates: start: 19920101
  2. TRIPHASIL-21 [Concomitant]
  3. LAMISIL [Concomitant]
  4. HYDROCODONE [Concomitant]
  5. PENICILLIN [Concomitant]
  6. WELLBUTRIN SR [Concomitant]
     Route: 048

REACTIONS (9)
  - ANXIETY [None]
  - DEPRESSION [None]
  - DRUG WITHDRAWAL SYNDROME [None]
  - ERYTHEMA [None]
  - IRRITABILITY [None]
  - OBSESSIVE-COMPULSIVE DISORDER [None]
  - PANIC REACTION [None]
  - PRURITUS [None]
  - RASH [None]
